FAERS Safety Report 23063479 (Version 1)
Quarter: 2023Q4

REPORT INFORMATION
  Report Type: Spontaneous
  Country: JP (occurrence: JP)
  Receive Date: 20231013
  Receipt Date: 20231013
  Transmission Date: 20240109
  Serious: Yes (Other)
  Sender: FDA-Public Use
  Company Number: JP-TAKEDA-2023TUS098159

PATIENT

DRUGS (2)
  1. FOSRENOL [Suspect]
     Active Substance: LANTHANUM CARBONATE
     Indication: Hyperphosphataemia
     Dosage: UNK
     Route: 048
  2. FOSRENOL [Suspect]
     Active Substance: LANTHANUM CARBONATE
     Indication: Chronic kidney disease

REACTIONS (2)
  - Choking [Unknown]
  - Dysphagia [Unknown]
